FAERS Safety Report 7454849-1 (Version None)
Quarter: 2011Q2

REPORT INFORMATION
  Report Type: 
  Country: None (occurrence: None)
  Receive Date: 20110425
  Receipt Date: 20110415
  Transmission Date: 20111010
  Serious: Yes (Other)
  Sender: FDA-Public Use
  Company Number: 1000018717

PATIENT
  Age: 67 Year
  Sex: Male
  Weight: 67 kg

DRUGS (6)
  1. SALBUHEXAL (SALBUTAMOL) (NASAL DROPS (INCLUDING NASAL SPRAY) (SALBUTAM [Concomitant]
  2. CONTIPHYLLIN (THEOPHYLLINE) [Concomitant]
  3. ROFLUMILAST (ROFLUMILAST) (TABLETS) [Suspect]
     Indication: CHRONIC OBSTRUCTIVE PULMONARY DISEASE
     Dosage: 500 MCG (500 MCG, 1 IN 1 D), ORAL
     Route: 048
     Dates: start: 20110126, end: 20110204
  4. RAMIPRIL [Concomitant]
  5. SPIRIVA [Concomitant]
  6. SUMBICORT (BUDESONIDE, FORMOTEROL FUMARATE) (BUDESONIDE, FORMOTROL FUM [Concomitant]

REACTIONS (6)
  - DEPRESSION [None]
  - DYSPNOEA [None]
  - PANIC ATTACK [None]
  - DELUSION [None]
  - ANXIETY [None]
  - HALLUCINATION [None]
